FAERS Safety Report 16431144 (Version 20)
Quarter: 2023Q1

REPORT INFORMATION
  Report Type: Report from Study
  Country: US (occurrence: US)
  Receive Date: 20190614
  Receipt Date: 20230113
  Transmission Date: 20230418
  Serious: No
  Sender: FDA-Public Use
  Company Number: US-PFIZER INC-2018537027

PATIENT
  Sex: Male
  Weight: 81 kg

DRUGS (18)
  1. LYRICA [Suspect]
     Active Substance: PREGABALIN
     Indication: Breakthrough pain
     Dosage: 150 MILLIGRAM, PRN (TAKE 1 CAPSULE BY MOUTH EVERY DAY AS NEEDED)
     Route: 048
  2. LYRICA [Suspect]
     Active Substance: PREGABALIN
     Indication: Fibromyalgia
     Dosage: 300 MG, 2X/DAY
     Route: 048
     Dates: start: 2013, end: 2013
  3. LYRICA [Suspect]
     Active Substance: PREGABALIN
     Indication: Breakthrough pain
     Dosage: 150 MG, AS NEEDED (ONCE A DAY AS NEEDED)PO (ORAL) QHS (BEDTIME) PRN
     Route: 048
     Dates: start: 2013, end: 2013
  4. LYRICA [Suspect]
     Active Substance: PREGABALIN
     Indication: Neuralgia
     Dosage: 350 MG, 2X/DAY (350MG CAPSULE BY MOUTH ONE IN MORNING, ONE IN AFTERNOON)
     Route: 048
     Dates: start: 2013, end: 2013
  5. LYRICA [Suspect]
     Active Substance: PREGABALIN
     Indication: Pain
     Dosage: 100 MG, AS NEEDED
     Route: 048
     Dates: start: 2013, end: 2013
  6. LYRICA [Suspect]
     Active Substance: PREGABALIN
     Indication: Neuropathy peripheral
     Dosage: 150 MG, 1X/DAY (EVERY NIGHT AT BEDTIME/ 1 CAPSULE PO QD (ONCE A DAY))
     Route: 048
     Dates: start: 2013
  7. LYRICA [Suspect]
     Active Substance: PREGABALIN
     Dosage: 300 MILLIGRAM, BID (TAKE 1 CAPSULE BY MOUTH TWICE A DAY AS )
     Route: 048
  8. TOPIRAMATE [Concomitant]
     Active Substance: TOPIRAMATE
     Indication: Product used for unknown indication
     Dosage: 100 MILLIGRAM, QD,100 MG, 1X/DAY
     Route: 048
  9. FOLIC ACID [Concomitant]
     Active Substance: FOLIC ACID
     Indication: Product used for unknown indication
     Dosage: 1 MILLIGRAM, QD,1 MG, 1X/DAY
     Route: 048
  10. VITAMIN B12 [Concomitant]
     Active Substance: CYANOCOBALAMIN
     Indication: Product used for unknown indication
     Dosage: 1 ML, MONTHLY
     Route: 058
  11. PANTOPRAZOLE [Concomitant]
     Active Substance: PANTOPRAZOLE
     Indication: Product used for unknown indication
     Dosage: 40 MG, 1X/DAY REGIMEN DOSE UNIT: MILLIGRAM
     Route: 048
  12. LEVOTHYROXINE [Concomitant]
     Active Substance: LEVOTHYROXINE
     Indication: Product used for unknown indication
     Dosage: 150 UG, 1X/DAY REGIMEN DOSE UNIT: MICROGRAM
     Route: 048
  13. XARELTO [Concomitant]
     Active Substance: RIVAROXABAN
     Indication: Product used for unknown indication
     Dosage: 20 MG, 1X/DAY REGIMEN DOSE UNIT: MILLIGRAM
     Route: 048
  14. ASPIRIN [Concomitant]
     Active Substance: ASPIRIN
     Indication: Product used for unknown indication
     Dosage: 81 MG, 1X/DAY REGIMEN DOSE UNIT: MILLIGRAM
     Route: 048
  15. ATORVASTATIN [Concomitant]
     Active Substance: ATORVASTATIN
     Indication: Product used for unknown indication
     Dosage: 40 MG, 1X/DAY REGIMEN DOSE UNIT: MILLIGRAM
     Route: 048
  16. METOPROLOL SUCCINATE [Concomitant]
     Active Substance: METOPROLOL SUCCINATE
     Indication: Product used for unknown indication
     Dosage: 1X/DAY ( 25MG 1/2 PO ONCE A DAY)
     Route: 048
  17. DULOXETINE [Concomitant]
     Active Substance: DULOXETINE
     Indication: Product used for unknown indication
     Dosage: 30 MG, 1X/DAY REGIMEN DOSE UNIT: MILLIGRAM
     Route: 048
  18. XYOSTED [Concomitant]
     Active Substance: TESTOSTERONE ENANTHATE
     Indication: Product used for unknown indication
     Dosage: 75 MG, WEEKLY
     Route: 065

REACTIONS (2)
  - Body height decreased [Unknown]
  - Prescribed overdose [Unknown]
